FAERS Safety Report 20161340 (Version 3)
Quarter: 2022Q1

REPORT INFORMATION
  Report Type: Spontaneous
  Country: CO (occurrence: CO)
  Receive Date: 20211208
  Receipt Date: 20220307
  Transmission Date: 20220423
  Serious: No
  Sender: FDA-Public Use
  Company Number: CO-PFIZER INC-2021293325

PATIENT
  Sex: Male

DRUGS (2)
  1. GENOTROPIN [Suspect]
     Active Substance: SOMATROPIN
     Dosage: UNK
     Route: 058
     Dates: start: 2019
  2. GENOTROPIN [Suspect]
     Active Substance: SOMATROPIN
     Dosage: 0.5 MG IN A UNSPECIFIED FREQUENCY
     Route: 058
     Dates: start: 20211126

REACTIONS (4)
  - Expired device used [Unknown]
  - Device failure [Unknown]
  - Device occlusion [Unknown]
  - Device leakage [Unknown]
